FAERS Safety Report 22035793 (Version 7)
Quarter: 2023Q2

REPORT INFORMATION
  Report Type: Spontaneous
  Country: DE (occurrence: DE)
  Receive Date: 20230224
  Receipt Date: 20230502
  Transmission Date: 20230722
  Serious: Yes (Life-Threatening, Hospitalization, Other)
  Sender: FDA-Public Use
  Company Number: DE-PFIZER INC-PV202300034024

PATIENT
  Age: 12 Year
  Sex: Male
  Weight: 15.1 kg

DRUGS (9)
  1. GENOTROPIN [Suspect]
     Active Substance: SOMATROPIN
     Indication: Growth hormone deficiency
     Dosage: 0.1 MG, DAILY
     Route: 058
     Dates: start: 20211101
  2. GENOTROPIN [Suspect]
     Active Substance: SOMATROPIN
     Indication: Growth hormone deficiency
     Dosage: 0.1 MG (DAY 1-14), 1X/DAY
     Dates: start: 20211124, end: 20211207
  3. GENOTROPIN [Suspect]
     Active Substance: SOMATROPIN
     Dosage: 0.2 MG (DAY 15-28), 1X/DAY
     Dates: start: 20211208, end: 20211221
  4. GENOTROPIN [Suspect]
     Active Substance: SOMATROPIN
     Dosage: 0.3 MG, 1X/DAY
     Dates: start: 20211222, end: 20220308
  5. GENOTROPIN [Suspect]
     Active Substance: SOMATROPIN
     Dosage: 0.4 MG, 1X/DAY
     Dates: start: 20220309, end: 20220910
  6. GENOTROPIN [Suspect]
     Active Substance: SOMATROPIN
     Dosage: 0.1 MG
     Dates: start: 20230106, end: 20230211
  7. GENOTROPIN [Suspect]
     Active Substance: SOMATROPIN
     Dosage: 0.2 MG
     Dates: start: 20230212, end: 20230215
  8. OMEPRAZOLE [Concomitant]
     Active Substance: OMEPRAZOLE
     Indication: Gastrooesophageal reflux disease
     Dosage: 20 MG, 2X/DAY, FOR MANY YEARS
  9. IRON [Concomitant]
     Active Substance: IRON
     Dosage: UNK

REACTIONS (20)
  - Syncope [Unknown]
  - Oxygen saturation decreased [Unknown]
  - Dyspnoea [Unknown]
  - Screaming [Unknown]
  - Sensation of foreign body [Unknown]
  - Oropharyngeal spasm [Unknown]
  - Throat tightness [Unknown]
  - Sleep apnoea syndrome [Not Recovered/Not Resolved]
  - Condition aggravated [Unknown]
  - Gastrointestinal inflammation [Unknown]
  - Gastritis [Unknown]
  - Gastrooesophageal reflux disease [Not Recovered/Not Resolved]
  - Disease recurrence [Unknown]
  - Jaw disorder [Unknown]
  - Tongue disorder [Unknown]
  - Lymphoedema [Unknown]
  - Seizure [Not Recovered/Not Resolved]
  - Cyanosis [Not Recovered/Not Resolved]
  - Respiratory distress [Not Recovered/Not Resolved]
  - Respiratory arrest [Not Recovered/Not Resolved]

NARRATIVE: CASE EVENT DATE: 20220411
